FAERS Safety Report 8389934-3 (Version None)
Quarter: 2012Q2

REPORT INFORMATION
  Report Type: 
  Country: None (occurrence: None)
  Receive Date: 20120529
  Receipt Date: 20120515
  Transmission Date: 20120825
  Serious: Yes (Hospitalization, Other)
  Sender: FDA-Public Use
  Company Number: GB-JNJFOC-20120514252

PATIENT
  Age: 15 Year
  Sex: Female

DRUGS (1)
  1. FENTANYL-100 [Suspect]
     Indication: SUICIDE ATTEMPT
     Dosage: 5X100 UG/HR
     Route: 062

REACTIONS (9)
  - DEPRESSED LEVEL OF CONSCIOUSNESS [None]
  - HYPERHIDROSIS [None]
  - INTENTIONAL OVERDOSE [None]
  - TACHYCARDIA [None]
  - APNOEA [None]
  - BRADYPNOEA [None]
  - DRUG DIVERSION [None]
  - MIOSIS [None]
  - RESPIRATORY DEPRESSION [None]
